FAERS Safety Report 9154139 (Version 1)
Quarter: 2013Q1

REPORT INFORMATION
  Report Type: Spontaneous
  Country: FR (occurrence: FR)
  Receive Date: 20130311
  Receipt Date: 20130311
  Transmission Date: 20140127
  Serious: Yes (Hospitalization)
  Sender: FDA-Public Use
  Company Number: FR-SANOFI-AVENTIS-2013SA021753

PATIENT
  Age: 31 Year
  Sex: Female

DRUGS (2)
  1. RIFINAH [Suspect]
     Indication: TUBERCULOSIS
     Route: 048
     Dates: start: 20121122, end: 20130122
  2. NEXPLANON [Interacting]
     Indication: PRODUCT USED FOR UNKNOWN INDICATION
     Dosage: STRENGTH: 68 MG
     Route: 058
     Dates: start: 201110

REACTIONS (3)
  - Unwanted pregnancy [Recovered/Resolved]
  - Drug ineffective [Unknown]
  - Drug interaction [Unknown]
